FAERS Safety Report 4288629-5 (Version None)
Quarter: 2004Q1

REPORT INFORMATION
  Report Type: 
  Country: None (occurrence: None)
  Receive Date: 20040209
  Receipt Date: 20040203
  Transmission Date: 20041129
  Serious: Yes (Other)
  Sender: FDA-Public Use
  Company Number: CA-BRISTOL-MYERS SQUIBB COMPANY-12496303

PATIENT
  Age: 78 Year
  Sex: Male

DRUGS (1)
  1. TEQUIN [Suspect]
     Route: 048
     Dates: start: 20031226

REACTIONS (1)
  - BLOOD GLUCOSE DECREASED [None]
